FAERS Safety Report 15460412 (Version 2)
Quarter: 2018Q4

REPORT INFORMATION
  Report Type: Spontaneous
  Country: FR (occurrence: FR)
  Receive Date: 20181003
  Receipt Date: 20181112
  Transmission Date: 20190204
  Serious: Yes (Hospitalization, Congenital Anomaly, Other)
  Sender: FDA-Public Use
  Company Number: FR-UCBSA-2018044037

PATIENT
  Age: 1 Year
  Sex: Male
  Weight: 1.1 kg

DRUGS (4)
  1. SPECIAFOLDINE [Concomitant]
     Active Substance: FOLIC ACID
     Indication: PRODUCT USED FOR UNKNOWN INDICATION
     Route: 064
  2. KEPPRA [Suspect]
     Active Substance: LEVETIRACETAM
     Indication: EPILEPSY
     Dosage: 250 MG, UNK
     Route: 064
     Dates: start: 2016, end: 20161005
  3. DEPAKINE CHRONO [Concomitant]
     Active Substance: VALPROATE SODIUM
     Indication: EPILEPSY
  4. ASPEGIC (ACETYLSALICYLATE LYSINE) [Concomitant]
     Active Substance: ASPIRIN DL-LYSINE
     Indication: PRODUCT USED FOR UNKNOWN INDICATION
     Route: 064

REACTIONS (12)
  - Sepsis [Unknown]
  - Respiratory disorder neonatal [Recovered/Resolved]
  - Bone marrow disorder [Unknown]
  - Penis disorder [Unknown]
  - Urinary tract malformation [Unknown]
  - Congenital skin dimples [Unknown]
  - Cryptorchism [Unknown]
  - Foetal growth restriction [Recovering/Resolving]
  - Premature baby [Unknown]
  - Hypospadias [Unknown]
  - Foetal exposure during pregnancy [Unknown]
  - Spina bifida occulta [Unknown]

NARRATIVE: CASE EVENT DATE: 2016
